FAERS Safety Report 4861586-6 (Version None)
Quarter: 2005Q4

REPORT INFORMATION
  Report Type: 
  Country: None (occurrence: None)
  Receive Date: 20051220
  Receipt Date: 20051209
  Transmission Date: 20060501
  Serious: Yes (Other)
  Sender: FDA-Public Use
  Company Number: CA-BRISTOL-MYERS SQUIBB COMPANY-13218771

PATIENT
  Age: 73 Year
  Sex: Male

DRUGS (11)
  1. TEQUIN [Suspect]
     Route: 048
  2. GLYBURIDE [Suspect]
     Route: 048
  3. ALTACE [Concomitant]
  4. ASPIRIN [Concomitant]
  5. FOLATE [Concomitant]
     Route: 048
  6. LIPITOR [Concomitant]
  7. METFORMIN HCL [Concomitant]
  8. MS CONTIN [Concomitant]
  9. PREVACID [Concomitant]
  10. PYRIDOXINE HCL [Concomitant]
  11. TIAZAC [Concomitant]

REACTIONS (5)
  - DIZZINESS [None]
  - HYPOGLYCAEMIA [None]
  - MALAISE [None]
  - NAUSEA [None]
  - TREMOR [None]
